FAERS Safety Report 23190607 (Version 1)
Quarter: 2023Q4

REPORT INFORMATION
  Report Type: Spontaneous
  Country: SE (occurrence: None)
  Receive Date: 20231116
  Receipt Date: 20231116
  Transmission Date: 20240110
  Serious: Yes (Other)
  Sender: FDA-Public Use
  Company Number: 2023A253903

PATIENT
  Age: 75 Year
  Sex: Male

DRUGS (2)
  1. SYMBICORT [Suspect]
     Active Substance: BUDESONIDE\FORMOTEROL FUMARATE DIHYDRATE
     Indication: Chronic obstructive pulmonary disease
     Dosage: UNKNOWN UNKNOWN
     Route: 055
  2. OXIS [Concomitant]
     Active Substance: FORMOTEROL FUMARATE

REACTIONS (2)
  - Aphasia [Recovered/Resolved]
  - Feeling abnormal [Recovered/Resolved]
